FAERS Safety Report 21392271 (Version 1)
Quarter: 2022Q3

REPORT INFORMATION
  Report Type: Spontaneous
  Country: US (occurrence: None)
  Receive Date: 20220928
  Receipt Date: 20220928
  Transmission Date: 20221027
  Serious: Yes (Other)
  Sender: FDA-Public Use
  Company Number: None

PATIENT
  Age: 17 Year
  Sex: Male
  Weight: 57.2 kg

DRUGS (10)
  1. ANAKINRA [Suspect]
     Active Substance: ANAKINRA
     Indication: Chronic infantile neurological cutaneous and articular syndrome
     Dosage: FREQUENCY : DAILY;?
     Route: 058
  2. infliximab 300mg intravenous infusion every 8 weeks [Concomitant]
     Dates: start: 20210201
  3. calcium+ vitamin D 1500/400 po daily [Concomitant]
     Dates: start: 20181207
  4. ferrous sulfate 325mg po daily [Concomitant]
     Dates: start: 20181207
  5. anakinra 200mg subcutaneous daily [Concomitant]
     Dates: start: 20130101, end: 20181202
  6. anakinra 350mg subcutaneous daily [Concomitant]
     Dates: start: 20181203, end: 20190301
  7. anakinra 600mg subcutaneous daily [Concomitant]
     Dates: start: 20190302, end: 20191230
  8. anakinra 500mg subcutaneous daily [Concomitant]
     Dates: start: 20191231, end: 20210401
  9. anakinra 400mg subcutaneous daily [Concomitant]
     Dates: start: 20210402, end: 20220107
  10. anakinra 300 mg subcutaneous daily [Concomitant]

REACTIONS (2)
  - Injection site nodule [None]
  - Amyloidosis [None]

NARRATIVE: CASE EVENT DATE: 20211021
